FAERS Safety Report 9610659 (Version 1)
Quarter: 2013Q4

REPORT INFORMATION
  Report Type: Spontaneous
  Country: US (occurrence: US)
  Receive Date: 20131009
  Receipt Date: 20131009
  Transmission Date: 20140711
  Serious: No
  Sender: FDA-Public Use
  Company Number: US-BAYER-2013-122073

PATIENT
  Age: 60 Year
  Sex: Female
  Weight: 54 kg

DRUGS (1)
  1. ALEVE CAPLET [Suspect]
     Dosage: 3 DF, ONCE
     Dates: start: 20131004, end: 20131004

REACTIONS (1)
  - Extra dose administered [None]
